FAERS Safety Report 7710951-8 (Version None)
Quarter: 2011Q3

REPORT INFORMATION
  Report Type: 
  Country: None (occurrence: None)
  Receive Date: 20110825
  Receipt Date: 20110822
  Transmission Date: 20111222
  Serious: Yes (Death)
  Sender: FDA-Public Use
  Company Number: FR-MERCK-1108FRA00101

PATIENT
  Age: 85 Year
  Sex: Male
  Weight: 102 kg

DRUGS (1)
  1. JANUVIA [Suspect]
     Indication: TYPE 2 DIABETES MELLITUS
     Route: 048
     Dates: start: 20091216

REACTIONS (1)
  - MYOCARDIAL INFARCTION [None]
